FAERS Safety Report 15801429 (Version 2)
Quarter: 2019Q1

REPORT INFORMATION
  Report Type: Spontaneous
  Country: US (occurrence: US)
  Receive Date: 20190109
  Receipt Date: 20190205
  Transmission Date: 20190417
  Serious: No
  Sender: FDA-Public Use
  Company Number: US-GRANULES INDIA LIMITED-2061011

PATIENT
  Sex: Female

DRUGS (4)
  1. METHOCARBAMOL TABLETS USP, 500 MG AND 750 MG. [Suspect]
     Active Substance: METHOCARBAMOL
     Indication: MUSCLE SPASMS
     Route: 048
     Dates: start: 20181213, end: 20181217
  2. METHOCARBAMOL TABLETS USP, 500 MG AND 750 MG. [Suspect]
     Active Substance: METHOCARBAMOL
     Indication: PAIN
     Route: 048
     Dates: start: 20181213, end: 20181217
  3. METHOCARBAMOL TABLETS USP, 500 MG AND 750 MG. [Suspect]
     Active Substance: METHOCARBAMOL
     Indication: IRRITABLE BOWEL SYNDROME
     Route: 048
     Dates: start: 20181213, end: 20181217
  4. METHOCARBAMOL TABLETS USP, 500 MG AND 750 MG. [Suspect]
     Active Substance: METHOCARBAMOL
     Indication: ARTHRALGIA
     Route: 048
     Dates: start: 20181213, end: 20181217

REACTIONS (11)
  - Abdominal discomfort [Recovered/Resolved]
  - Product substitution issue [Recovered/Resolved]
  - Condition aggravated [Recovered/Resolved]
  - Arthralgia [Recovered/Resolved]
  - Nausea [Recovered/Resolved]
  - Asthenia [Recovered/Resolved]
  - Pain [Recovered/Resolved]
  - Malaise [Recovered/Resolved]
  - Fatigue [Recovered/Resolved]
  - Muscular weakness [Recovered/Resolved]
  - Headache [Recovered/Resolved]
